FAERS Safety Report 9245405 (Version 2)
Quarter: 2013Q2

REPORT INFORMATION
  Report Type: Spontaneous
  Country: DK (occurrence: DK)
  Receive Date: 20130422
  Receipt Date: 20130522
  Transmission Date: 20140414
  Serious: Yes (Hospitalization)
  Sender: FDA-Public Use
  Company Number: DK-BAYER-2013-047757

PATIENT
  Age: 76 Year
  Sex: Male
  Weight: 80 kg

DRUGS (1)
  1. ULTRAVIST [Suspect]
     Indication: CARDIAC IMAGING PROCEDURE
     Dosage: 80 MG (85ML), ONCE
     Dates: start: 20130415, end: 20130415

REACTIONS (3)
  - Depressed level of consciousness [Recovered/Resolved]
  - Syncope [Recovered/Resolved]
  - Fatigue [Recovered/Resolved]
